FAERS Safety Report 5297778-4 (Version None)
Quarter: 2007Q2

REPORT INFORMATION
  Report Type: 
  Country: None (occurrence: None)
  Receive Date: 20070412
  Receipt Date: 20070412
  Transmission Date: 20071010
  Serious: Yes (Life-Threatening, Hospitalization)
  Sender: FDA-Public Use
  Company Number: None

PATIENT
  Age: 26 Year
  Sex: Male
  Weight: 105.3 kg

DRUGS (2)
  1. CLOZARIL [Suspect]
     Indication: SCHIZOPHRENIA
     Dosage: 12.5MG BID PO
     Route: 048
     Dates: start: 20070319, end: 20070406
  2. CLOZARIL [Suspect]

REACTIONS (4)
  - AGITATION [None]
  - CARDIAC FAILURE CONGESTIVE [None]
  - MYOCARDITIS [None]
  - PYREXIA [None]
